FAERS Safety Report 7014895-9 (Version None)
Quarter: 2010Q3

REPORT INFORMATION
  Report Type: 
  Country: None (occurrence: None)
  Receive Date: 20100927
  Receipt Date: 20100719
  Transmission Date: 20110219
  Serious: No
  Sender: FDA-Public Use
  Company Number: US-ASTRAZENECA-2010SE33554

PATIENT
  Age: 64 Year
  Sex: Female
  Weight: 127 kg

DRUGS (11)
  1. ARIMIDEX [Suspect]
     Indication: BREAST CANCER
     Route: 048
     Dates: start: 20100201
  2. COZAAR [Suspect]
     Route: 065
  3. LISINOPRIL [Concomitant]
  4. HUMULIN 70/30 [Concomitant]
  5. SYNTHROID [Concomitant]
  6. BIOTIN [Concomitant]
  7. XANAX [Concomitant]
  8. LIPITOR [Concomitant]
  9. NORVASC [Concomitant]
  10. FISH OIL [Concomitant]
  11. ASPIRIN [Concomitant]

REACTIONS (2)
  - PAIN [None]
  - RED BLOOD CELL SEDIMENTATION RATE INCREASED [None]
